FAERS Safety Report 9656525 (Version 1)
Quarter: 2013Q4

REPORT INFORMATION
  Report Type: Spontaneous
  Country: US (occurrence: None)
  Receive Date: 20131029
  Receipt Date: 20131029
  Transmission Date: 20140711
  Serious: Yes (Other)
  Sender: FDA-Public Use
  Company Number: None

PATIENT
  Age: 34 Year
  Sex: Female
  Weight: 104.33 kg

DRUGS (1)
  1. LIPITOR [Suspect]
     Indication: BLOOD CHOLESTEROL INCREASED
     Dosage: LIPITOR 80 TAKE 1 TAB NIGHT
     Dates: start: 20130301, end: 20131014

REACTIONS (3)
  - Drug ineffective [None]
  - Blood glucose decreased [None]
  - Hepatic enzyme increased [None]
